FAERS Safety Report 8477267-6 (Version None)
Quarter: 2012Q2

REPORT INFORMATION
  Report Type: 
  Country: None (occurrence: None)
  Receive Date: 20120629
  Receipt Date: 20120626
  Transmission Date: 20120825
  Serious: Yes (Other)
  Sender: FDA-Public Use
  Company Number: US-JNJFOC-20120411806

PATIENT
  Sex: Female
  Weight: 71.22 kg

DRUGS (11)
  1. PROLIEF [Concomitant]
  2. LODINE [Concomitant]
     Indication: PAIN
  3. SIMPONI [Suspect]
     Indication: RHEUMATOID ARTHRITIS
     Route: 058
     Dates: start: 20120501
  4. SIMPONI [Suspect]
     Route: 058
     Dates: start: 20091201
  5. SIMPONI [Suspect]
     Route: 058
     Dates: start: 20110101
  6. METHOTREXATE [Suspect]
     Route: 048
     Dates: start: 20080528
  7. VESICARE [Concomitant]
  8. FOLIC ACID [Concomitant]
  9. TEKTURNA [Concomitant]
     Indication: HYPERTENSION
     Dates: start: 20100101
  10. METHOTREXATE [Suspect]
     Indication: PRODUCT USED FOR UNKNOWN INDICATION
     Route: 048
     Dates: start: 20110501
  11. CERTIZINE [Concomitant]
     Indication: MULTIPLE ALLERGIES

REACTIONS (3)
  - BRONCHITIS BACTERIAL [None]
  - SKIN ULCER [None]
  - EYE PRURITUS [None]
